FAERS Safety Report 6245096-X (Version None)
Quarter: 2009Q2

REPORT INFORMATION
  Report Type: 
  Country: None (occurrence: None)
  Receive Date: 20090623
  Receipt Date: 20090623
  Transmission Date: 20091009
  Serious: Yes (Hospitalization, Other)
  Sender: FDA-Public Use
  Company Number: None

PATIENT
  Age: 38 Year
  Sex: Female
  Weight: 107.5025 kg

DRUGS (2)
  1. PRISTIQ [Suspect]
     Indication: ANXIETY
     Dosage: 1 ONCE A DAY
  2. PRISTIQ [Suspect]
     Indication: DEPRESSION
     Dosage: 1 ONCE A DAY

REACTIONS (20)
  - ABDOMINAL PAIN UPPER [None]
  - ABNORMAL SENSATION IN EYE [None]
  - AGITATION [None]
  - BRAIN OEDEMA [None]
  - CONFUSIONAL STATE [None]
  - CRYING [None]
  - DEPRESSED MOOD [None]
  - DIARRHOEA [None]
  - EYE SWELLING [None]
  - FATIGUE [None]
  - FEELING ABNORMAL [None]
  - FEELING HOT [None]
  - HEAD DISCOMFORT [None]
  - HEADACHE [None]
  - HYPOAESTHESIA [None]
  - IRRITABILITY [None]
  - MALAISE [None]
  - MOOD ALTERED [None]
  - OEDEMA PERIPHERAL [None]
  - SWELLING FACE [None]
